FAERS Safety Report 20290210 (Version 4)
Quarter: 2022Q1

REPORT INFORMATION
  Report Type: Report from Study
  Country: CA (occurrence: CA)
  Receive Date: 20220104
  Receipt Date: 20220322
  Transmission Date: 20220423
  Serious: Yes (Other)
  Sender: FDA-Public Use
  Company Number: CA-BAUSCH-BL-2021-028473

PATIENT

DRUGS (8)
  1. CONTRAVE [Suspect]
     Active Substance: BUPROPION HYDROCHLORIDE\NALTREXONE HYDROCHLORIDE
     Indication: Weight control
     Dosage: 90/8 MG
     Route: 048
     Dates: start: 20210719, end: 20210808
  2. CONTRAVE [Suspect]
     Active Substance: BUPROPION HYDROCHLORIDE\NALTREXONE HYDROCHLORIDE
     Dosage: 90/8 MG (2 DOSAGE FORMS, 1 IN 12 HR)
     Route: 048
     Dates: start: 20210809
  3. CONTRAVE [Suspect]
     Active Substance: BUPROPION HYDROCHLORIDE\NALTREXONE HYDROCHLORIDE
     Dosage: 90MG/8MG 2 TABS QAM, 2 TABS QPM.(SECOND ATTEMPT)
     Route: 048
     Dates: start: 20211204, end: 20220104
  4. CONTRAVE [Suspect]
     Active Substance: BUPROPION HYDROCHLORIDE\NALTREXONE HYDROCHLORIDE
     Dosage: 90MG/8MG (4 TABS/DAY WEEK 3) (THIRD ATTEMPT)
     Route: 048
     Dates: start: 20220107
  5. METFORMIN [Concomitant]
     Active Substance: METFORMIN HYDROCHLORIDE
     Indication: Type 2 diabetes mellitus
     Dosage: HAD BEEN ON THIS DRUG FOR 6 OR 7 MONTHS (500 MG,1 IN 12 HR)
     Route: 048
  6. OMEGA 3 FISH OIL [FISH OIL] [Concomitant]
     Indication: Routine health maintenance
     Dosage: 1 DOSAGE FORMS, 1 IN 1 D
     Route: 048
  7. ASPIRIN [Concomitant]
     Active Substance: ASPIRIN
     Indication: Hypertension
     Dosage: 81 MG, 1 IN 1 D
     Route: 048
  8. AMLODIPINE [Concomitant]
     Active Substance: AMLODIPINE BESYLATE
     Indication: Hypertension
     Dosage: HAS BEEN ON THIS FOR YEARS, DAILY (1 IN 1 D)
     Route: 048

REACTIONS (7)
  - Cataract [Recovered/Resolved]
  - Dysgeusia [Not Recovered/Not Resolved]
  - Constipation [Not Recovered/Not Resolved]
  - Dry mouth [Not Recovered/Not Resolved]
  - Therapeutic response unexpected [Unknown]
  - Product dose omission issue [Unknown]
  - Intentional product use issue [Unknown]

NARRATIVE: CASE EVENT DATE: 20210101
